FAERS Safety Report 10483766 (Version 1)
Quarter: 2014Q3

REPORT INFORMATION
  Report Type: Spontaneous
  Country: US (occurrence: None)
  Receive Date: 20140929
  Receipt Date: 20140929
  Transmission Date: 20150326
  Serious: Yes (Other)
  Sender: FDA-Public Use
  Company Number: None

PATIENT
  Age: 33 Year
  Sex: Female
  Weight: 54.43 kg

DRUGS (1)
  1. GIANVI [Suspect]
     Active Substance: DROSPIRENONE\ETHINYL ESTRADIOL
     Indication: CONTRACEPTION
     Dates: start: 20140715, end: 20140925

REACTIONS (11)
  - Confusional state [None]
  - Anxiety disorder [None]
  - Feeling abnormal [None]
  - Crying [None]
  - Suicidal ideation [None]
  - Weight decreased [None]
  - Amnesia [None]
  - Depression [None]
  - Judgement impaired [None]
  - Depressed mood [None]
  - Mood altered [None]

NARRATIVE: CASE EVENT DATE: 20140925
